FAERS Safety Report 9611852 (Version 2)
Quarter: 2013Q4

REPORT INFORMATION
  Report Type: Spontaneous
  Country: BR (occurrence: BR)
  Receive Date: 20131010
  Receipt Date: 20131010
  Transmission Date: 20140711
  Serious: Yes (Other)
  Sender: FDA-Public Use
  Company Number: BR-AMGEN-BRASP2013064795

PATIENT
  Age: 48 Year
  Sex: Female
  Weight: 69 kg

DRUGS (10)
  1. ENBREL [Suspect]
     Indication: RHEUMATOID ARTHRITIS
     Dosage: 50 MG, ONCE WEEKLY
     Route: 058
     Dates: start: 2013
  2. ARAVA [Concomitant]
     Dosage: 20 MG, ONCE DAILY
     Route: 048
  3. PREDNISONE [Concomitant]
     Dosage: 5 MG, 1 TABLET, THREE TIMES A DAY
     Route: 048
  4. PREDNISONE [Concomitant]
     Dosage: 20 MG, 2X/DAY
  5. ENALAPRIL [Concomitant]
     Dosage: 1 TABLET (10MG), THREE TIMES A DAY
     Route: 048
  6. METHOTREXATE [Concomitant]
     Dosage: STRENGTH 2.5MG, 6 TABLETS, ONCE WEEKLY
     Route: 048
  7. METHOTREXATE [Concomitant]
     Dosage: AT 6 TABLETS (^25 MG^) IN THE WEEK
  8. LINEZOLID [Concomitant]
     Dosage: 25 MG,, TWICE A DAY
  9. HIDROTIAZIDA [Concomitant]
     Dosage: 50 MG, ONCE A DAY
  10. ANTHRALIN [Concomitant]
     Dosage: 50 MG, THREE TIMES A DAY

REACTIONS (10)
  - Urticaria [Unknown]
  - Blood pressure increased [Unknown]
  - Swelling [Unknown]
  - Erythema [Unknown]
  - Headache [Unknown]
  - Hypersensitivity [Unknown]
  - Chest pain [Unknown]
  - Injection site pruritus [Unknown]
  - Injection site pain [Unknown]
  - Injection site papule [Unknown]
